FAERS Safety Report 5974470-1 (Version None)
Quarter: 2008Q4

REPORT INFORMATION
  Report Type: 
  Country: None (occurrence: None)
  Receive Date: 20081201
  Receipt Date: 20081201
  Transmission Date: 20090506
  Serious: No
  Sender: FDA-Public Use
  Company Number: CH-PFIZER INC-2008097555

PATIENT
  Sex: Male
  Weight: 79 kg

DRUGS (3)
  1. LYRICA [Suspect]
     Indication: POST HERPETIC NEURALGIA
     Route: 048
     Dates: start: 20080912, end: 20080923
  2. OLFEN [Concomitant]
     Route: 048
     Dates: start: 20080908
  3. VALTREX [Concomitant]
     Route: 048
     Dates: start: 20080911, end: 20080918

REACTIONS (1)
  - NOCTURIA [None]
